FAERS Safety Report 4506931-6 (Version None)
Quarter: 2004Q4

REPORT INFORMATION
  Report Type: 
  Country: None (occurrence: None)
  Receive Date: 20041117
  Receipt Date: 20041105
  Transmission Date: 20050328
  Serious: Yes (Death)
  Sender: FDA-Public Use
  Company Number: DE-2004-034643

PATIENT
  Age: 76 Year
  Sex: Female

DRUGS (2)
  1. ULTRAVIST 300 [Suspect]
     Indication: ANGIOGRAM
     Dosage: 72 ML, 1 DOSE, INTRA-ARTERIAL
     Route: 013
     Dates: start: 20041018
  2. LITALIR [Concomitant]

REACTIONS (3)
  - ANGIONEUROTIC OEDEMA [None]
  - DYSPNOEA [None]
  - STRIDOR [None]
